FAERS Safety Report 24154030 (Version 1)
Quarter: 2024Q3

REPORT INFORMATION
  Report Type: Spontaneous
  Country: US (occurrence: US)
  Receive Date: 20240730
  Receipt Date: 20240730
  Transmission Date: 20241016
  Serious: No
  Sender: PURDUE
  Company Number: US-PURDUE-USA-2024-0311030

PATIENT
  Sex: Male

DRUGS (1)
  1. BUPRENORPHINE HYDROCHLORIDE AND NALOXONE HYDROCHLORIDE [Suspect]
     Active Substance: BUPRENORPHINE HYDROCHLORIDE\NALOXONE HYDROCHLORIDE
     Indication: Product used for unknown indication
     Dosage: UNK
     Route: 048

REACTIONS (3)
  - Withdrawal syndrome [Unknown]
  - Product quality issue [Unknown]
  - Product quality issue [Unknown]
